FAERS Safety Report 12782971 (Version 1)
Quarter: 2016Q3

REPORT INFORMATION
  Report Type: Spontaneous
  Country: US (occurrence: US)
  Receive Date: 20160927
  Receipt Date: 20160927
  Transmission Date: 20161109
  Serious: No
  Sender: FDA-Public Use
  Company Number: US-PFIZER INC-2016443716

PATIENT
  Age: 77 Year
  Sex: Male
  Weight: 80 kg

DRUGS (3)
  1. LASIX [Suspect]
     Active Substance: FUROSEMIDE
     Dosage: UNK UNK, 1X/DAY, (20 QD)
     Dates: start: 20160328
  2. COREG [Suspect]
     Active Substance: CARVEDILOL
     Dosage: UNK UNK, 2X/DAY, (6.25 BID)
     Dates: start: 20160328
  3. SPIRONOLACTONE. [Suspect]
     Active Substance: SPIRONOLACTONE
     Dosage: UNK UNK, 1X/DAY, (25 QD)
     Dates: start: 20160328

REACTIONS (1)
  - Fatigue [Unknown]
